FAERS Safety Report 11145629 (Version 1)
Quarter: 2015Q2

REPORT INFORMATION
  Report Type: Report from Study
  Country: NL (occurrence: NL)
  Receive Date: 20150528
  Receipt Date: 20150528
  Transmission Date: 20150821
  Serious: Yes (Death, Other)
  Sender: FDA-Public Use
  Company Number: NL-CELGENE-114-C5013-12062702

PATIENT
  Age: 63 Year
  Sex: Male
  Weight: 114.7 kg

DRUGS (19)
  1. SIMVASTATINE [Concomitant]
     Active Substance: SIMVASTATIN
     Indication: HYPERCHOLESTEROLAEMIA
     Route: 048
     Dates: start: 201005
  2. CLOPIDOGREL [Concomitant]
     Active Substance: CLOPIDOGREL BISULFATE
     Indication: HYPERTENSION
     Dosage: 60 MILLIGRAM
     Route: 048
     Dates: start: 201006
  3. CODEINE [Concomitant]
     Active Substance: CODEINE
     Indication: COUGH
     Dosage: 50 MICROGRAM
     Route: 048
     Dates: start: 20110610
  4. ACETYLCYSTEINE. [Concomitant]
     Active Substance: ACETYLCYSTEINE
     Indication: PRODUCTIVE COUGH
     Route: 048
     Dates: start: 20120306
  5. PANTOPRAZOLE SODIUM. [Concomitant]
     Active Substance: PANTOPRAZOLE SODIUM
     Indication: GASTRITIS PROPHYLAXIS
     Dosage: 48 MILLIGRAM
     Route: 048
     Dates: start: 201006
  6. BETAHISTINE [Concomitant]
     Active Substance: BETAHISTINE
     Indication: VERTIGO
     Dosage: 3000 MILLIGRAM
     Route: 048
     Dates: start: 20101224
  7. ATROVENT [Concomitant]
     Active Substance: IPRATROPIUM BROMIDE
     Indication: BRONCHOSPASM
     Dosage: 1666.6667
     Route: 055
     Dates: start: 20110629
  8. VITAMIN D [Concomitant]
     Active Substance: CHOLECALCIFEROL
     Indication: HYPOVITAMINOSIS
     Dosage: 900 MILLIGRAM
     Route: 065
     Dates: start: 20120306
  9. PREDNISONE. [Suspect]
     Active Substance: PREDNISONE
     Indication: PROSTATE CANCER
     Route: 048
     Dates: start: 20110318, end: 20120119
  10. CC-5013 [Suspect]
     Active Substance: LENALIDOMIDE
     Indication: PROSTATE CANCER
     Dosage: 25 MILLIGRAM
     Route: 048
     Dates: start: 20110328, end: 20111124
  11. CAPTOPRIL. [Concomitant]
     Active Substance: CAPTOPRIL
     Indication: HYPERTENSION
     Dosage: 20 MILLIGRAM
     Route: 048
     Dates: start: 199807
  12. ULCOGANT [Concomitant]
     Active Substance: SUCRALFATE
     Indication: GASTRITIS PROPHYLAXIS
     Route: 048
     Dates: start: 20120306
  13. ZOLADEX [Concomitant]
     Active Substance: GOSERELIN ACETATE
     Indication: PROSTATE CANCER
     Dosage: 60 MILLIGRAM
     Route: 058
     Dates: start: 200409
  14. DOCETAXEL. [Suspect]
     Active Substance: DOCETAXEL
     Indication: PROSTATE CANCER
     Dosage: 200 MILLIGRAM
     Route: 041
     Dates: start: 20110328, end: 20110815
  15. METOPROLOL TARTRATE. [Concomitant]
     Active Substance: METOPROLOL TARTRATE
     Indication: HYPERTENSION
     Dosage: 100 MILLIGRAM
     Route: 048
     Dates: start: 199806
  16. NASONEX [Concomitant]
     Active Substance: MOMETASONE FUROATE
     Indication: BRONCHOSPASM
     Dosage: 600 MILLIGRAM
     Route: 055
     Dates: start: 20110629
  17. NIFEDIPINE. [Concomitant]
     Active Substance: NIFEDIPINE
     Indication: HYPERTENSION
     Dosage: 40 MILLIGRAM
     Route: 048
     Dates: start: 200309
  18. CLOPIDOGREL [Concomitant]
     Active Substance: CLOPIDOGREL BISULFATE
     Indication: TRANSIENT ISCHAEMIC ATTACK
     Route: 065
  19. PARACETAMOL [Concomitant]
     Active Substance: ACETAMINOPHEN
     Indication: PAIN
     Dosage: 40 MICROGRAM
     Route: 048
     Dates: start: 20110411

REACTIONS (2)
  - Squamous cell carcinoma of the tongue [Fatal]
  - Squamous cell carcinoma of the tongue [Recovered/Resolved]

NARRATIVE: CASE EVENT DATE: 20120507
